FAERS Safety Report 23733194 (Version 2)
Quarter: 2024Q2

REPORT INFORMATION
  Report Type: Spontaneous
  Country: AT (occurrence: AT)
  Receive Date: 20240411
  Receipt Date: 20240426
  Transmission Date: 20240716
  Serious: Yes (Other)
  Sender: FDA-Public Use
  Company Number: AT-TEVA-VS-3179987

PATIENT
  Age: 61 Year
  Sex: Male

DRUGS (1)
  1. SILDENAFIL [Suspect]
     Active Substance: SILDENAFIL
     Indication: Suicide attempt
     Route: 065

REACTIONS (4)
  - Toxicity to various agents [Recovered/Resolved]
  - Embolic stroke [Recovered/Resolved]
  - Seizure [Recovered/Resolved]
  - Blood creatine phosphokinase increased [Recovered/Resolved]
